FAERS Safety Report 5267770-4 (Version None)
Quarter: 2007Q1

REPORT INFORMATION
  Report Type: 
  Country: None (occurrence: None)
  Receive Date: 20070316
  Receipt Date: 20070305
  Transmission Date: 20070707
  Serious: Yes (Other)
  Sender: FDA-Public Use
  Company Number: GR-PFIZER INC-2007017374

PATIENT
  Age: 24 Year
  Sex: Male

DRUGS (1)
  1. ZITHROMAX [Suspect]
     Indication: FEBRILE INFECTION
     Route: 048

REACTIONS (1)
  - DRUG ERUPTION [None]
